FAERS Safety Report 21372380 (Version 1)
Quarter: 2022Q3

REPORT INFORMATION
  Report Type: Report from Study
  Country: US (occurrence: US)
  Receive Date: 20220924
  Receipt Date: 20220924
  Transmission Date: 20221027
  Serious: No
  Sender: FDA-Public Use
  Company Number: US-NOVARTISTESTPH-NVSC2022US216057

PATIENT
  Sex: Female

DRUGS (1)
  1. COSENTYX [Suspect]
     Active Substance: SECUKINUMAB
     Indication: Psoriatic arthropathy
     Dosage: 150 MG, QW (ONCE A WEEK FOR 5 WEEKS THEN 300 MG EVERY 4 WEEKS)
     Route: 058
     Dates: start: 20220828

REACTIONS (8)
  - Chest pain [Recovering/Resolving]
  - Arthralgia [Unknown]
  - Pain in extremity [Unknown]
  - Pain in jaw [Unknown]
  - Feeling hot [Unknown]
  - Fatigue [Unknown]
  - Psoriasis [Unknown]
  - Pruritus [Unknown]
